FAERS Safety Report 5721228-4 (Version None)
Quarter: 2008Q2

REPORT INFORMATION
  Report Type: 
  Country: None (occurrence: None)
  Receive Date: 20080428
  Receipt Date: 20080428
  Transmission Date: 20081010
  Serious: Yes (Other)
  Sender: FDA-Public Use
  Company Number: None

PATIENT
  Age: 5 Year
  Sex: Female
  Weight: 22.6799 kg

DRUGS (3)
  1. SINGULAIR [Suspect]
     Indication: ASTHMA
     Dosage: ONE TABLET EVERY NIGHT PO
     Route: 048
     Dates: start: 20030901, end: 20080328
  2. SINGULAIR [Suspect]
     Indication: HYPERSENSITIVITY
     Dosage: ONE TABLET EVERY NIGHT PO
     Route: 048
     Dates: start: 20030901, end: 20080328
  3. SINGULAIR [Suspect]
     Dosage: ONE TABLET EVERY NIGHT PO
     Route: 048

REACTIONS (4)
  - AGGRESSION [None]
  - ANGER [None]
  - DEPRESSION [None]
  - PARANOIA [None]
